FAERS Safety Report 15565937 (Version 1)
Quarter: 2018Q4

REPORT INFORMATION
  Report Type: Report from Study
  Country: JP (occurrence: JP)
  Receive Date: 20181030
  Receipt Date: 20181030
  Transmission Date: 20190205
  Serious: Yes (Life-Threatening, Hospitalization, Disabling, Other)
  Sender: FDA-Public Use
  Company Number: JP-GLAXOSMITHKLINE-JP2018JPN066681

PATIENT
  Age: 70 Year
  Sex: Female
  Weight: 62 kg

DRUGS (23)
  1. URINORM (BENZBROMARONE) [Concomitant]
     Dosage: 75 MG, QD, AFTER BREAKFAST
  2. LOQOA [Concomitant]
     Dosage: 1 DF, QD, FOR LOW BACK
  3. BELIMUMAB [Suspect]
     Active Substance: BELIMUMAB
     Dosage: UNK
     Route: 041
     Dates: start: 20180417
  4. LOTRIGA [Concomitant]
     Active Substance: OMEGA-3-ACID ETHYL ESTERS
     Dosage: 2 G, QD, AFTER BREAKFAST
  5. LANSOPRAZOLE-OD [Concomitant]
     Active Substance: LANSOPRAZOLE
     Dosage: 30 MG, QD, AFTER BREAKFAST
  6. CELLCEPT CAPSULE [Concomitant]
     Indication: LUPUS NEPHRITIS
     Dosage: 750 MG, BID
  7. ZETIA [Concomitant]
     Active Substance: EZETIMIBE
     Dosage: 10 MG, QD, AFTER BREAKFAST
  8. OLMESARTAN OD [Concomitant]
     Dosage: 10 MG, QD, AFTER BREAKFAST
  9. FERROUS SODIUM CITRATE [Concomitant]
     Active Substance: SODIUM FERROUS CITRATE
     Dosage: 50 MG, QD, AFTER BREAKFAST
  10. PREDNISOLONE. [Concomitant]
     Active Substance: PREDNISOLONE
     Dosage: 10 MG, QD, AFTER BREAKFAST
  11. CELLCEPT CAPSULE [Concomitant]
     Dosage: 1000 MG, BID,AFTER BREAKFAST,DINNER
  12. BELIMUMAB [Suspect]
     Active Substance: BELIMUMAB
     Indication: SYSTEMIC LUPUS ERYTHEMATOSUS
     Dosage: UNK
     Route: 041
     Dates: start: 20180403
  13. BELIMUMAB [Suspect]
     Active Substance: BELIMUMAB
     Dosage: UNK
     Route: 041
     Dates: start: 20180925, end: 20180925
  14. ONETRAM [Concomitant]
     Active Substance: TRAMADOL HYDROCHLORIDE
     Dosage: 100 MG, QD, AFTER BREAKFAST
  15. SENNOSIDE [Concomitant]
     Active Substance: SENNOSIDES
     Indication: CONSTIPATION
     Dosage: 12 MG, PRN,AT CONSTIPATION
  16. RECALBON (JAPAN) [Concomitant]
     Active Substance: MINODRONIC ACID
     Dosage: 50 MG, CYC,EVERY FOUR WEEKS,RIGHT AFTER WAKING UP
  17. BEZAFIBRATE [Concomitant]
     Active Substance: BEZAFIBRATE
     Dosage: 200 MG, QD, AFTER BREAKFAST
  18. AMLODIPINE [Concomitant]
     Active Substance: AMLODIPINE BESYLATE
     Dosage: 5 MG, BID, AFTER BREAKFAST, AFTER DINNER
  19. CALONAL [Concomitant]
     Active Substance: ACETAMINOPHEN
     Dosage: 600 MG, BID, AFTER BREAKFAST, AFTER DINNER
  20. DAIPHEN [Concomitant]
     Active Substance: SULFAMETHOXAZOLE\TRIMETHOPRIM
     Dosage: 1 DF, UNK,AFTER BREAKFAST, EVERY WEDNESDAY AND FRIDAY
  21. BELIMUMAB [Suspect]
     Active Substance: BELIMUMAB
     Dosage: UNK
     Route: 041
     Dates: start: 20180828
  22. ALFACALCIDOL [Concomitant]
     Active Substance: ALFACALCIDOL
     Dosage: 0.25 ?G, QD, AFTER BREAKFAST
  23. BAYASPIRIN [Concomitant]
     Active Substance: ASPIRIN
     Dosage: 100 MG, QD, AFTER BREAKFAST

REACTIONS (13)
  - Blood pressure increased [Unknown]
  - Aortic dissection [Recovering/Resolving]
  - Pleural effusion [Unknown]
  - Cholelithiasis [Unknown]
  - Diverticulum intestinal [Unknown]
  - Abdominal pain lower [Recovering/Resolving]
  - Kidney angiomyolipoma [Unknown]
  - Upper respiratory tract infection [Unknown]
  - Mitral valve calcification [Unknown]
  - Herpes zoster [Recovered/Resolved]
  - Renal cyst [Unknown]
  - Liver disorder [Unknown]
  - Splenic calcification [Unknown]

NARRATIVE: CASE EVENT DATE: 20180410
